FAERS Safety Report 7163002-0 (Version None)
Quarter: 2010Q4

REPORT INFORMATION
  Report Type: 
  Country: None (occurrence: None)
  Receive Date: 20101215
  Receipt Date: 20100208
  Transmission Date: 20110411
  Serious: Yes (Hospitalization, Other)
  Sender: FDA-Public Use
  Company Number: US-PFIZER INC-2010018252

PATIENT
  Sex: Female
  Weight: 68.481 kg

DRUGS (4)
  1. LYRICA [Suspect]
     Indication: SURGERY
     Dosage: 75 MG, 2X/DAY
     Route: 048
     Dates: start: 20060601
  2. LYRICA [Suspect]
     Indication: NEURALGIA
  3. HYDROCHLOROTHIAZIDE [Concomitant]
  4. PREMPRO [Concomitant]

REACTIONS (4)
  - BURNING SENSATION [None]
  - CONGENITAL COAGULOPATHY [None]
  - PULMONARY THROMBOSIS [None]
  - SURGERY [None]
